FAERS Safety Report 8522489-9 (Version None)
Quarter: 2012Q3

REPORT INFORMATION
  Report Type: 
  Country: None (occurrence: None)
  Receive Date: 20120719
  Receipt Date: 20120711
  Transmission Date: 20120928
  Serious: Yes (Hospitalization, Other)
  Sender: FDA-Public Use
  Company Number: US-ABBOTT-12P-163-0954902-00

PATIENT
  Sex: Female
  Weight: 61.29 kg

DRUGS (5)
  1. METHOTREXATE [Concomitant]
     Indication: RHEUMATOID ARTHRITIS
  2. FOSAMAX [Concomitant]
     Indication: OSTEOPOROSIS
  3. MELOXICAM [Concomitant]
     Indication: RHEUMATOID ARTHRITIS
  4. HUMIRA [Suspect]
     Indication: RHEUMATOID ARTHRITIS
     Route: 058
     Dates: start: 20110616, end: 20120601
  5. HUMIRA [Suspect]
     Dates: start: 20080101, end: 20100101

REACTIONS (1)
  - NODULE [None]
